FAERS Safety Report 7881987-1 (Version None)
Quarter: 2011Q4

REPORT INFORMATION
  Report Type: 
  Country: None (occurrence: None)
  Receive Date: 20111101
  Receipt Date: 20110606
  Transmission Date: 20120403
  Serious: No
  Sender: FDA-Public Use
  Company Number: US-AMGEN-USASP2011029018

PATIENT
  Sex: Female

DRUGS (1)
  1. ENBREL [Suspect]
     Indication: PRODUCT USED FOR UNKNOWN INDICATION
     Dosage: 50 MG, QWK
     Dates: start: 19990401

REACTIONS (4)
  - PRODUCTIVE COUGH [None]
  - RHINITIS ALLERGIC [None]
  - UPPER-AIRWAY COUGH SYNDROME [None]
  - INJECTION SITE PAIN [None]
